FAERS Safety Report 19104613 (Version 1)
Quarter: 2021Q2

REPORT INFORMATION
  Report Type: Spontaneous
  Country: US (occurrence: US)
  Receive Date: 20210407
  Receipt Date: 20210407
  Transmission Date: 20210717
  Serious: Yes (Other)
  Sender: FDA-Public Use
  Company Number: US-HIKMA PHARMACEUTICALS USA INC.-US-H14001-21-01710

PATIENT
  Age: 68 Year
  Sex: Male
  Weight: 63 kg

DRUGS (5)
  1. LEVETIRACETAM. [Suspect]
     Active Substance: LEVETIRACETAM
     Indication: PRODUCT USED FOR UNKNOWN INDICATION
     Dosage: UNKNOWN
     Route: 065
  2. CLOPIDOGREL [Suspect]
     Active Substance: CLOPIDOGREL BISULFATE
     Indication: PRODUCT USED FOR UNKNOWN INDICATION
     Dosage: UNKNOWN
     Route: 065
  3. METHOTREXATE. [Suspect]
     Active Substance: METHOTREXATE
     Indication: SARCOIDOSIS
     Dosage: UNKNOWN
     Route: 048
  4. FOLIC ACID. [Suspect]
     Active Substance: FOLIC ACID
     Indication: SARCOIDOSIS
     Dosage: UNKNOWN
     Route: 065
  5. TRIMETHOPRIM/SULFAMETHOXAZOLE [Suspect]
     Active Substance: SULFAMETHOXAZOLE\TRIMETHOPRIM
     Indication: PROPHYLAXIS
     Dosage: UNKNOWN
     Route: 065

REACTIONS (12)
  - Dysarthria [Unknown]
  - Cachexia [Unknown]
  - Pyrexia [Unknown]
  - Peroneal nerve palsy [Unknown]
  - Muscular weakness [Unknown]
  - Splenomegaly [Unknown]
  - Tachycardia [Unknown]
  - Facial paralysis [Unknown]
  - Thrombocytopenia [Unknown]
  - Confusional state [Unknown]
  - Hypertonia [Unknown]
  - Leukopenia [Unknown]
